FAERS Safety Report 13966343 (Version 2)
Quarter: 2017Q4

REPORT INFORMATION
  Report Type: Spontaneous
  Country: NL (occurrence: NL)
  Receive Date: 20170913
  Receipt Date: 20171109
  Transmission Date: 20180320
  Serious: Yes (Hospitalization)
  Sender: FDA-Public Use
  Company Number: NL-NOVOPROD-562294

PATIENT
  Age: 28 Year
  Sex: Male

DRUGS (1)
  1. NOVOEIGHT [Suspect]
     Active Substance: ANTIHEMOPHILIC FACTOR, HUMAN RECOMBINANT
     Indication: PROPHYLAXIS
     Dosage: 3 TIMES PER WEEK
     Route: 042
     Dates: start: 20170519, end: 20170527

REACTIONS (4)
  - Chest discomfort [Recovered/Resolved]
  - Sensory disturbance [Recovered/Resolved]
  - Hypersensitivity [Recovered/Resolved]
  - Restlessness [Recovered/Resolved]

NARRATIVE: CASE EVENT DATE: 20170526
